FAERS Safety Report 11681607 (Version 1)
Quarter: 2015Q4

REPORT INFORMATION
  Report Type: Spontaneous
  Country: US (occurrence: None)
  Receive Date: 20151028
  Receipt Date: 20151028
  Transmission Date: 20160304
  Serious: Yes (Other)
  Sender: FDA-Public Use
  Company Number: None

PATIENT
  Age: 41 Year
  Sex: Male
  Weight: 70.31 kg

DRUGS (7)
  1. VEGETARIAN PROTEIN POWDER [Concomitant]
  2. DHEA [Concomitant]
     Active Substance: PRASTERONE
  3. FISH OIL [Concomitant]
     Active Substance: FISH OIL
  4. VITAMIN D [Concomitant]
     Active Substance: CHOLECALCIFEROL
  5. CREATINE [Concomitant]
     Active Substance: CREATINE
  6. ELECTROLYTES [Concomitant]
     Active Substance: ELECTROLYTES NOS
  7. GILENYA [Suspect]
     Active Substance: FINGOLIMOD HYDROCHLORIDE
     Indication: RELAPSING-REMITTING MULTIPLE SCLEROSIS
     Dosage: 1 PILL
     Route: 048
     Dates: start: 20150828, end: 20151025

REACTIONS (7)
  - Dyspnoea [None]
  - Chest discomfort [None]
  - Insomnia [None]
  - Sluggishness [None]
  - Diarrhoea [None]
  - Dysphagia [None]
  - Dysgeusia [None]

NARRATIVE: CASE EVENT DATE: 20151025
